FAERS Safety Report 6849445-0 (Version None)
Quarter: 2010Q3

REPORT INFORMATION
  Report Type: 
  Country: None (occurrence: None)
  Receive Date: 20100716
  Receipt Date: 20070928
  Transmission Date: 20110219
  Serious: No
  Sender: FDA-Public Use
  Company Number: US-PFIZER INC-2007082466

PATIENT
  Sex: Female
  Weight: 63.636 kg

DRUGS (12)
  1. CHANTIX [Suspect]
     Indication: SMOKING CESSATION THERAPY
     Dates: start: 20070101
  2. METHADONE HCL [Suspect]
  3. NEXIUM [Concomitant]
  4. POTASSIUM CHLORIDE [Concomitant]
  5. FUROSEMIDE [Concomitant]
  6. SYNTHROID [Concomitant]
  7. CYMBALTA [Concomitant]
  8. OXYCONTIN [Concomitant]
  9. LORTAB [Concomitant]
  10. TRIAZOLAM [Concomitant]
  11. MULTI-VITAMINS [Concomitant]
  12. WARFARIN SODIUM [Concomitant]

REACTIONS (4)
  - DRUG INEFFECTIVE [None]
  - HYPERTHYROIDISM [None]
  - RASH [None]
  - STRESS [None]
